FAERS Safety Report 22208432 (Version 1)
Quarter: 2023Q2

REPORT INFORMATION
  Report Type: Spontaneous
  Country: US (occurrence: US)
  Receive Date: 20230413
  Receipt Date: 20230413
  Transmission Date: 20230722
  Serious: No
  Sender: FDA-Public Use
  Company Number: US-BIOVITRUM-2023-US-13548

PATIENT
  Age: 76 Year
  Sex: Female

DRUGS (1)
  1. DOPTELET [Suspect]
     Active Substance: AVATROMBOPAG MALEATE
     Indication: Immune thrombocytopenia
     Dosage: FREQUENCY AND DOSE UNITS : UNKNOWN
     Route: 065
     Dates: start: 202207

REACTIONS (2)
  - Platelet count decreased [Unknown]
  - Insomnia [Unknown]
